FAERS Safety Report 11138702 (Version 1)
Quarter: 2015Q2

REPORT INFORMATION
  Report Type: Spontaneous
  Country: FR (occurrence: FR)
  Receive Date: 20150527
  Receipt Date: 20150527
  Transmission Date: 20150821
  Serious: Yes (Hospitalization, Other)
  Sender: FDA-Public Use
  Company Number: FR-ACCORD-031001

PATIENT
  Age: 69 Year
  Sex: Female

DRUGS (11)
  1. CRESTOR [Concomitant]
     Active Substance: ROSUVASTATIN CALCIUM
  2. ENDOXAN [Suspect]
     Active Substance: CYCLOPHOSPHAMIDE
     Indication: BREAST CANCER
     Dosage: 600 MG/M? (1000 MG)
     Route: 042
     Dates: start: 20150413
  3. OMEPRAZOLE. [Concomitant]
     Active Substance: OMEPRAZOLE
  4. EZETROL [Concomitant]
     Active Substance: EZETIMIBE
  5. KARDEGIC [Concomitant]
     Active Substance: ASPIRIN LYSINE
  6. HYDROCHLOROTHIAZIDE/VALSARTAN [Concomitant]
  7. LOVENOX [Concomitant]
     Active Substance: ENOXAPARIN SODIUM
  8. ACCORD^S DOCETAXEL [Suspect]
     Active Substance: DOCETAXEL
     Indication: BREAST CANCER
     Dosage: 75MG/M? (130 MG)
     Route: 042
     Dates: start: 20150413
  9. NEULASTA [Concomitant]
     Active Substance: PEGFILGRASTIM
  10. LASILIX [Concomitant]
     Active Substance: FUROSEMIDE
  11. AVLOCARDYL [Concomitant]
     Active Substance: PROPRANOLOL HYDROCHLORIDE

REACTIONS (5)
  - Diarrhoea [Recovering/Resolving]
  - Malaise [Unknown]
  - Pancytopenia [Recovering/Resolving]
  - Abdominal pain [Unknown]
  - Pyrexia [Recovering/Resolving]

NARRATIVE: CASE EVENT DATE: 20150417
